FAERS Safety Report 5793142-X (Version None)
Quarter: 2008Q2

REPORT INFORMATION
  Report Type: 
  Country: None (occurrence: None)
  Receive Date: 20080627
  Receipt Date: 20080417
  Transmission Date: 20081010
  Serious: No
  Sender: FDA-Public Use
  Company Number: A0723443A

PATIENT
  Age: 43 Year
  Sex: Male

DRUGS (3)
  1. FLOVENT [Suspect]
     Dosage: 2PUFF TWICE PER DAY
     Route: 055
     Dates: start: 20050101
  2. SEREVENT [Concomitant]
  3. ALBUTEROL [Concomitant]

REACTIONS (3)
  - DRUG INEFFECTIVE [None]
  - ILL-DEFINED DISORDER [None]
  - PHARMACEUTICAL PRODUCT COMPLAINT [None]
